FAERS Safety Report 7162973-6 (Version None)
Quarter: 2010Q4

REPORT INFORMATION
  Report Type: 
  Country: None (occurrence: None)
  Receive Date: 20101215
  Receipt Date: 20100203
  Transmission Date: 20110411
  Serious: Yes (Other)
  Sender: FDA-Public Use
  Company Number: SE-PFIZER INC-2010014781

PATIENT

DRUGS (2)
  1. LYRICA [Suspect]
  2. GABAPENTIN [Suspect]

REACTIONS (4)
  - HOT FLUSH [None]
  - IMPAIRED WORK ABILITY [None]
  - PARAESTHESIA [None]
  - WITHDRAWAL SYNDROME [None]
